FAERS Safety Report 13939417 (Version 2)
Quarter: 2017Q4

REPORT INFORMATION
  Report Type: Spontaneous
  Country: AU (occurrence: AU)
  Receive Date: 20170906
  Receipt Date: 20171003
  Transmission Date: 20180320
  Serious: Yes (Death, Hospitalization, Other)
  Sender: FDA-Public Use
  Company Number: AU-AMGEN-AUSSP2017132911

PATIENT
  Age: 61 Year
  Sex: Male

DRUGS (3)
  1. KYPROLIS [Suspect]
     Active Substance: CARFILZOMIB
     Dosage: UNK
     Route: 065
     Dates: start: 201708, end: 201709
  2. KYPROLIS [Suspect]
     Active Substance: CARFILZOMIB
     Indication: PLASMA CELL MYELOMA
     Dosage: 20 MG/M2, DAY 1,2
     Route: 065
     Dates: start: 20170721, end: 20170722
  3. KYPROLIS [Suspect]
     Active Substance: CARFILZOMIB
     Dosage: 60 MG/M2, DAY 8,9
     Route: 065
     Dates: start: 20170728, end: 20170729

REACTIONS (3)
  - Myelodysplastic syndrome [Fatal]
  - Congestive cardiomyopathy [Unknown]
  - Pneumonia [Unknown]

NARRATIVE: CASE EVENT DATE: 2017
